FAERS Safety Report 7461059-0 (Version None)
Quarter: 2011Q2

REPORT INFORMATION
  Report Type: 
  Country: None (occurrence: None)
  Receive Date: 20110505
  Receipt Date: 20110502
  Transmission Date: 20111010
  Serious: Yes (Hospitalization, Other)
  Sender: FDA-Public Use
  Company Number: US-AMGEN-KDL424593

PATIENT
  Age: 62 Year
  Sex: Male
  Weight: 81.3 kg

DRUGS (16)
  1. FOLIC ACID [Concomitant]
     Dosage: UNK UNK, UNK
  2. OMEPRAZOLE [Concomitant]
     Dosage: 40 MG, QD
     Route: 048
  3. NPLATE [Suspect]
     Dosage: UNK
     Dates: start: 20100518, end: 20101019
  4. NPLATE [Suspect]
     Dosage: 160
     Dates: start: 20100501, end: 20101019
  5. DAPSONE [Concomitant]
     Dosage: UNK UNK, UNK
  6. TRAMADOL [Concomitant]
     Dosage: UNK UNK, UNK
  7. NPLATE [Suspect]
     Dosage: 160 A?G, UNK
     Dates: start: 20101202
  8. NPLATE [Suspect]
     Dosage: UNK
     Dates: end: 20101118
  9. CORTICOSTEROIDS [Concomitant]
     Dosage: UNK
  10. FLOMAX [Concomitant]
  11. MULTIVITAMIN                       /00097801/ [Concomitant]
  12. NPLATE [Suspect]
     Indication: IDIOPATHIC THROMBOCYTOPENIC PURPURA
     Dosage: 80 A?G, UNK
     Dates: start: 20100518, end: 20101019
  13. SIMVASTATIN [Concomitant]
     Dosage: 20 MG, QD
     Route: 048
     Dates: end: 20101019
  14. CALCIUM CARBONATE/VITAMIN D3 [Concomitant]
     Dosage: 600 MG, QD
     Route: 048
  15. ICAPS [Concomitant]
     Dosage: UNK UNK, UNK
  16. VITAMIN A [Concomitant]

REACTIONS (8)
  - DEMYELINATING POLYNEUROPATHY [None]
  - HYPOAESTHESIA [None]
  - ALOPECIA [None]
  - SPLENECTOMY [None]
  - THROMBOCYTOPENIA [None]
  - HAEMOLYTIC ANAEMIA [None]
  - DEEP VEIN THROMBOSIS [None]
  - EMBOLISM [None]
